FAERS Safety Report 4732610-6 (Version None)
Quarter: 2005Q3

REPORT INFORMATION
  Report Type: 
  Country: None (occurrence: None)
  Receive Date: 20050726
  Receipt Date: 20040902
  Transmission Date: 20060218
  Serious: Yes (Hospitalization)
  Sender: FDA-Public Use
  Company Number: 602739

PATIENT
  Age: 22 Year
  Sex: Female
  Weight: 101.7 kg

DRUGS (1)
  1. TISSEEL VH KIT [Suspect]
     Dosage: 1.2 CC; ONCE; TOP
     Route: 061
     Dates: start: 20040827, end: 20040827

REACTIONS (5)
  - BURN INFECTION [None]
  - GRAFT COMPLICATION [None]
  - RASH PUSTULAR [None]
  - TRANSPLANT REJECTION [None]
  - WOUND INFECTION [None]
